FAERS Safety Report 19105374 (Version 3)
Quarter: 2021Q2

REPORT INFORMATION
  Report Type: Report from Study
  Country: NZ (occurrence: NZ)
  Receive Date: 20210408
  Receipt Date: 20210419
  Transmission Date: 20210717
  Serious: Yes (Other)
  Sender: FDA-Public Use
  Company Number: NZ-ROCHE-2797637

PATIENT
  Age: 72 Year
  Sex: Male

DRUGS (81)
  1. ACP?196 (BTK INHIBITOR) [Suspect]
     Active Substance: ACALABRUTINIB
     Route: 048
     Dates: start: 20160423, end: 20160423
  2. ACP?196 (BTK INHIBITOR) [Suspect]
     Active Substance: ACALABRUTINIB
     Route: 048
     Dates: start: 20180103, end: 20180309
  3. OBINUTUZUMAB. [Suspect]
     Active Substance: OBINUTUZUMAB
     Dosage: COMPLETED STUDY REGIMEN
     Route: 042
     Dates: start: 20160818, end: 20160818
  4. LORATADINE. [Concomitant]
     Active Substance: LORATADINE
     Indication: PREMEDICATION
     Dosage: ONE TIME ONLY
  5. PARACETAMOL [Concomitant]
     Active Substance: ACETAMINOPHEN
     Indication: PREMEDICATION
  6. AUGMENTIN [Concomitant]
     Active Substance: AMOXICILLIN\CLAVULANATE POTASSIUM
  7. TRIAZOLAM. [Concomitant]
     Active Substance: TRIAZOLAM
     Indication: INSOMNIA
  8. TROPISETRON [Concomitant]
     Active Substance: TROPISETRON
     Indication: NAUSEA
     Dosage: ONE TIME ONLY
  9. INTRAGAM P [Concomitant]
     Active Substance: HUMAN IMMUNOGLOBULIN G
     Indication: HYPOGAMMAGLOBULINAEMIA
  10. GASTROGRAFIN [Concomitant]
     Active Substance: DIATRIZOATE MEGLUMINE\DIATRIZOATE SODIUM
     Dosage: 1 TIME ONLY
  11. ZOLADEX [Concomitant]
     Active Substance: GOSERELIN ACETATE
     Indication: PROSTATE CANCER
  12. FENTANYL. [Concomitant]
     Active Substance: FENTANYL
     Indication: SEDATIVE THERAPY
     Dosage: 1 TIME ONLY
  13. IBUPROFEN. [Concomitant]
     Active Substance: IBUPROFEN
     Indication: PROCEDURAL PAIN
  14. MORPHINE [Concomitant]
     Active Substance: MORPHINE
     Indication: PROCEDURAL PAIN
  15. CARVEDILOL. [Concomitant]
     Active Substance: CARVEDILOL
  16. KLEAN?PREP [Concomitant]
     Active Substance: ELECTROLYTES NOS\POLYETHYLENE GLYCOL 3350
  17. FRUSEMIDE [Concomitant]
     Active Substance: FUROSEMIDE
  18. PARACETAMOL [Concomitant]
     Active Substance: ACETAMINOPHEN
     Indication: PYREXIA
  19. AUGMENTIN [Concomitant]
     Active Substance: AMOXICILLIN\CLAVULANATE POTASSIUM
  20. AMITRIPTYLINE [Concomitant]
     Active Substance: AMITRIPTYLINE
     Indication: DEPRESSION
     Dosage: 1 TIME ONLY
  21. PHENERGAN [Concomitant]
     Active Substance: PROMETHAZINE HYDROCHLORIDE
     Dosage: ONE TIME ONLY
  22. CIPROFLOXACINE [Concomitant]
     Active Substance: CIPROFLOXACIN
  23. CLEXANE [Concomitant]
     Active Substance: ENOXAPARIN SODIUM
  24. FAMOTIDINE. [Concomitant]
     Active Substance: FAMOTIDINE
     Indication: GASTROOESOPHAGEAL REFLUX DISEASE
  25. PROPOFOL. [Concomitant]
     Active Substance: PROPOFOL
     Dosage: 1 TIME ONLY
  26. METARAMINOL [Concomitant]
     Active Substance: METARAMINOL
  27. ACP?196 (BTK INHIBITOR) [Suspect]
     Active Substance: ACALABRUTINIB
     Route: 048
     Dates: start: 20171010, end: 20180102
  28. OBINUTUZUMAB. [Suspect]
     Active Substance: OBINUTUZUMAB
     Indication: CHRONIC LYMPHOCYTIC LEUKAEMIA
     Dosage: OBINUTUZUMAB IV INFUSIONS WILL BE ADMINISTERED OVER A TOTAL OF 6 TREATMENT CYCLES.
     Route: 042
     Dates: start: 20160330, end: 20160330
  29. DEXAMETHASONE. [Concomitant]
     Active Substance: DEXAMETHASONE
     Indication: PREMEDICATION
     Dosage: ONE TIME ONLY?60 MIN BEFORE EACH OBINUTUZUMAB INFUSION
  30. RANITIDINE. [Concomitant]
     Active Substance: RANITIDINE
     Indication: GASTROOESOPHAGEAL REFLUX DISEASE
  31. HEPARINISED SALINE [Concomitant]
     Active Substance: HEPARIN SODIUM
     Dosage: 50 UNITS
  32. SPAN K [Concomitant]
     Indication: HYPOKALAEMIA
  33. TRANEXAMIC ACID. [Concomitant]
     Active Substance: TRANEXAMIC ACID
     Dosage: 1 TIME ONLY
  34. XYLOCAINE [Concomitant]
     Active Substance: LIDOCAINE HYDROCHLORIDE
     Indication: ENDOSCOPY UPPER GASTROINTESTINAL TRACT
     Dosage: 2 UNITS?1 TIME ONLY
  35. INFLUENZA VACCINE [Concomitant]
     Active Substance: INFLUENZA VIRUS VACCINE
     Dosage: 1 TIME ONLY
  36. NILSTAT [NYSTATIN] [Concomitant]
     Indication: ORAL CANDIDIASIS
  37. GENTAMICIN. [Concomitant]
     Active Substance: GENTAMICIN
     Dosage: 1 TIME ONLY
  38. ACP?196 (BTK INHIBITOR) [Suspect]
     Active Substance: ACALABRUTINIB
     Indication: CHRONIC LYMPHOCYTIC LEUKAEMIA
     Dosage: ACP?196 WILL BE ORALLY ADMINISTERED STARTING ON CYCLE 1 DAY 1.
     Route: 048
     Dates: start: 20160301, end: 20160422
  39. ACP?196 (BTK INHIBITOR) [Suspect]
     Active Substance: ACALABRUTINIB
     Route: 048
     Dates: start: 20170131, end: 20170426
  40. DOMPERIDONE [Concomitant]
     Active Substance: DOMPERIDONE
     Indication: GASTROOESOPHAGEAL REFLUX DISEASE
  41. CIPROFLOXACINE [Concomitant]
     Active Substance: CIPROFLOXACIN
     Dosage: ONE TIME ONLY
  42. ACICLOVIR [Concomitant]
     Active Substance: ACYCLOVIR
  43. METRONIDAZOLE. [Concomitant]
     Active Substance: METRONIDAZOLE
     Indication: ILEUS PARALYTIC
  44. VITAMIN C [Concomitant]
     Active Substance: ASCORBIC ACID
  45. TRAMADOL. [Concomitant]
     Active Substance: TRAMADOL
  46. ACP?196 (BTK INHIBITOR) [Suspect]
     Active Substance: ACALABRUTINIB
     Route: 048
     Dates: start: 20170427, end: 20170717
  47. ACP?196 (BTK INHIBITOR) [Suspect]
     Active Substance: ACALABRUTINIB
     Route: 048
     Dates: start: 20200715, end: 20200929
  48. AMITRIPTYLINE [Concomitant]
     Active Substance: AMITRIPTYLINE
     Indication: ABDOMINAL PAIN UPPER
  49. PREDNISONE. [Concomitant]
     Active Substance: PREDNISONE
     Dosage: 00:30 HRS; 06:30 HRS AND 12:30 HRS
  50. LOPERAMIDE [Concomitant]
     Active Substance: LOPERAMIDE
  51. TEGRETOL XR [Concomitant]
     Active Substance: CARBAMAZEPINE
     Indication: NEUROPATHY PERIPHERAL
  52. CEFUROXIME. [Concomitant]
     Active Substance: CEFUROXIME
  53. FENTANYL. [Concomitant]
     Active Substance: FENTANYL
     Dosage: 50 MCG, 75 MCG
  54. FELODIPINE. [Concomitant]
     Active Substance: FELODIPINE
     Indication: HYPERTENSION
  55. PARACETAMOL [Concomitant]
     Active Substance: ACETAMINOPHEN
     Indication: HEADACHE
  56. AMLODIPINE [Concomitant]
     Active Substance: AMLODIPINE BESYLATE
     Indication: HYPERTENSION
  57. ONDANSETRON [Concomitant]
     Active Substance: ONDANSETRON
     Indication: PROCEDURAL NAUSEA
  58. FLUCLOXACILLIN [Concomitant]
     Active Substance: FLUCLOXACILLIN
     Indication: SKIN IRRITATION
  59. ZOSTAVAX [Concomitant]
     Active Substance: VARICELLA-ZOSTER VIRUS STRAIN OKA/MERCK LIVE ANTIGEN
  60. ACP?196 (BTK INHIBITOR) [Suspect]
     Active Substance: ACALABRUTINIB
     Route: 048
     Dates: start: 20161009, end: 20161014
  61. ACP?196 (BTK INHIBITOR) [Suspect]
     Active Substance: ACALABRUTINIB
     Route: 048
     Dates: start: 20170718, end: 20171009
  62. DEXAMETHASONE. [Concomitant]
     Active Substance: DEXAMETHASONE
     Dosage: 1 TIME ONLY
  63. PHENERGAN [Concomitant]
     Active Substance: PROMETHAZINE HYDROCHLORIDE
     Dosage: ONE TIME ONLY
  64. ALLOPURINOL. [Concomitant]
     Active Substance: ALLOPURINOL
  65. METRONIDAZOLE. [Concomitant]
     Active Substance: METRONIDAZOLE
  66. TRIMETHOPRIME [Concomitant]
     Active Substance: TRIMETHOPRIM
     Indication: HAEMATURIA
  67. ROXITHROMYCIN [Concomitant]
     Active Substance: ROXITHROMYCIN
     Indication: LOWER RESPIRATORY TRACT INFECTION
  68. CEPHAZOLIN [Concomitant]
     Active Substance: CEFAZOLIN
     Dosage: 1 TIME ONLY
  69. KETAMINE [Concomitant]
     Active Substance: KETAMINE
     Dosage: AS NEEDED
  70. HYOSCINE [Concomitant]
     Active Substance: SCOPOLAMINE
  71. ACP?196 (BTK INHIBITOR) [Suspect]
     Active Substance: ACALABRUTINIB
     Route: 048
     Dates: start: 20160424, end: 20161008
  72. ACP?196 (BTK INHIBITOR) [Suspect]
     Active Substance: ACALABRUTINIB
     Route: 048
     Dates: start: 20161015, end: 20170130
  73. ACP?196 (BTK INHIBITOR) [Suspect]
     Active Substance: ACALABRUTINIB
     Route: 048
     Dates: start: 20200930, end: 20201229
  74. OMEPRAZOLE. [Concomitant]
     Active Substance: OMEPRAZOLE
     Indication: GASTROOESOPHAGEAL REFLUX DISEASE
  75. CALCIUM [Concomitant]
     Active Substance: CALCIUM
  76. DERMOL (NEW ZEALAND) [Concomitant]
     Indication: ECZEMA NUMMULAR
     Dosage: 1 UNIT
  77. FOSAMAX PLUS D [Concomitant]
     Active Substance: ALENDRONATE SODIUM\CHOLECALCIFEROL
     Indication: OSTEOPOROSIS
     Dosage: 70/140 MG/MCG
  78. IRON [Concomitant]
     Active Substance: IRON
     Dosage: 1 TAB
  79. FLEET ENEMA [Concomitant]
     Active Substance: SODIUM PHOSPHATE, DIBASIC\SODIUM PHOSPHATE, MONOBASIC
     Dosage: 1 TIME ONLY
  80. VECURONIUM [Concomitant]
     Active Substance: VECURONIUM BROMIDE
  81. MIDAZOLAM. [Concomitant]
     Active Substance: MIDAZOLAM

REACTIONS (1)
  - Hepatic cirrhosis [Not Recovered/Not Resolved]

NARRATIVE: CASE EVENT DATE: 20191104
